FAERS Safety Report 6665823-7 (Version None)
Quarter: 2010Q2

REPORT INFORMATION
  Report Type: 
  Country: None (occurrence: None)
  Receive Date: 20100402
  Receipt Date: 20100326
  Transmission Date: 20101027
  Serious: Yes (Other)
  Sender: FDA-Public Use
  Company Number: JP-ROCHE-683871

PATIENT
  Sex: Female

DRUGS (9)
  1. TOCILIZUMAB [Suspect]
     Indication: RHEUMATOID ARTHRITIS
     Route: 041
     Dates: start: 20091015, end: 20091015
  2. TOCILIZUMAB [Suspect]
     Route: 041
     Dates: start: 20091112, end: 20091112
  3. TOCILIZUMAB [Suspect]
     Route: 041
     Dates: start: 20091210, end: 20091210
  4. TOCILIZUMAB [Suspect]
     Route: 041
     Dates: start: 20100304, end: 20100304
  5. PREDNISOLONE [Suspect]
     Indication: RHEUMATOID ARTHRITIS
     Dosage: FORM: PERORAL AGENT
     Route: 048
     Dates: end: 20091028
  6. PREDNISOLONE [Suspect]
     Route: 048
     Dates: start: 20091029, end: 20091125
  7. PREDNISOLONE [Suspect]
     Route: 048
     Dates: start: 20091126
  8. METOLATE [Concomitant]
     Route: 048
  9. CLINORIL [Concomitant]
     Route: 048

REACTIONS (1)
  - THALAMUS HAEMORRHAGE [None]
